FAERS Safety Report 4322707-7 (Version None)
Quarter: 2004Q1

REPORT INFORMATION
  Report Type: 
  Country: None (occurrence: None)
  Receive Date: 20040319
  Receipt Date: 20040310
  Transmission Date: 20041129
  Serious: Yes (Hospitalization)
  Sender: FDA-Public Use
  Company Number: US-SHR-03-016819

PATIENT
  Age: 52 Year
  Sex: Female
  Weight: 90.7 kg

DRUGS (10)
  1. BETASERON [Suspect]
     Indication: MULTIPLE SCLEROSIS
     Dosage: 8 MIU, EVERY 2D, SUBCUTANEOUS
     Route: 058
     Dates: start: 20030123, end: 20031029
  2. NEURONTIN [Concomitant]
  3. CATAPRES [Concomitant]
  4. TOPROL-XL [Concomitant]
  5. POTASSIUM (POTASSIUM) [Concomitant]
  6. PREMARIN [Concomitant]
  7. ASPIRIN [Concomitant]
  8. XANAX          /USA/(ALPRAZOLAM) [Concomitant]
  9. ENALAPRIL MALEATE [Concomitant]
  10. ADVAIR(SALMETEROL XINAFOATE, FLUTICASONE PROPIONATE) [Concomitant]

REACTIONS (22)
  - ASCITES [None]
  - BLOOD PRESSURE INCREASED [None]
  - BREATH SOUNDS DECREASED [None]
  - CARDIAC FAILURE CONGESTIVE [None]
  - CHRONIC OBSTRUCTIVE AIRWAYS DISEASE [None]
  - CORONARY ARTERY DISEASE [None]
  - CREPITATIONS [None]
  - DILATATION ATRIAL [None]
  - DIZZINESS [None]
  - DYSPNOEA [None]
  - DYSPNOEA EXERTIONAL [None]
  - ELECTROCARDIOGRAM T WAVE ABNORMAL [None]
  - EXERCISE TOLERANCE DECREASED [None]
  - FATIGUE [None]
  - INSOMNIA [None]
  - MITRAL VALVE INCOMPETENCE [None]
  - MYOCARDIAL INFARCTION [None]
  - NASOPHARYNGITIS [None]
  - OXYGEN SATURATION DECREASED [None]
  - PALLOR [None]
  - PITTING OEDEMA [None]
  - TACHYPNOEA [None]
